FAERS Safety Report 5621025-4 (Version None)
Quarter: 2008Q1

REPORT INFORMATION
  Report Type: 
  Country: None (occurrence: None)
  Receive Date: 20080208
  Receipt Date: 20080129
  Transmission Date: 20080703
  Serious: Yes (Hospitalization)
  Sender: FDA-Public Use
  Company Number: FR-PFIZER INC-2008009694

PATIENT
  Sex: Female

DRUGS (1)
  1. ARTHROTEC [Suspect]
     Route: 048
     Dates: start: 20061209, end: 20070815

REACTIONS (1)
  - INTESTINAL INFARCTION [None]
